FAERS Safety Report 14306695 (Version 2)
Quarter: 2018Q1

REPORT INFORMATION
  Report Type: Spontaneous
  Country: US (occurrence: US)
  Receive Date: 20171220
  Receipt Date: 20180110
  Transmission Date: 20180509
  Serious: No
  Sender: FDA-Public Use
  Company Number: US-AMGEN-USASP2017186797

PATIENT
  Age: 60 Year
  Sex: Female

DRUGS (1)
  1. ENBREL [Suspect]
     Active Substance: ETANERCEPT
     Indication: STILL^S DISEASE
     Dosage: 50 MG, 2 TIMES/WK
     Route: 058
     Dates: start: 20151120

REACTIONS (9)
  - Off label use [Unknown]
  - Sinus congestion [Not Recovered/Not Resolved]
  - Ear congestion [Not Recovered/Not Resolved]
  - Lymphadenopathy [Unknown]
  - Pyrexia [Not Recovered/Not Resolved]
  - Cough [Unknown]
  - Ear pain [Unknown]
  - Malaise [Unknown]
  - Throat irritation [Not Recovered/Not Resolved]

NARRATIVE: CASE EVENT DATE: 20171211
